FAERS Safety Report 6039267-5 (Version None)
Quarter: 2009Q1

REPORT INFORMATION
  Report Type: 
  Country: None (occurrence: None)
  Receive Date: 20090115
  Receipt Date: 20090107
  Transmission Date: 20090719
  Serious: Yes (Other)
  Sender: FDA-Public Use
  Company Number: PHEH2004US03588

PATIENT

DRUGS (9)
  1. ZOMETA [Suspect]
     Indication: BREAST CANCER
     Dosage: 4 MG ONE TIME PER MONTH
     Route: 042
     Dates: start: 20011101, end: 20031101
  2. ZOMETA [Suspect]
     Indication: LUNG CANCER METASTATIC
  3. AREDIA [Suspect]
     Indication: LUNG CANCER METASTATIC
     Dosage: 90 MG, MONTHLY
     Route: 042
     Dates: start: 20000401, end: 20011001
  4. OXYCONTIN [Concomitant]
     Indication: PAIN
     Dosage: 7.5 UNK PRN
     Route: 048
  5. DEPAKOTE [Concomitant]
     Indication: DEPRESSION
  6. CELEXA [Concomitant]
     Indication: PAIN
  7. CLONAZEPAM [Concomitant]
     Indication: DEPRESSION
  8. TAXOL [Concomitant]
     Indication: BREAST CANCER
  9. ADRIAMYCIN PFS [Concomitant]

REACTIONS (9)
  - BONE DISORDER [None]
  - BREAST CANCER METASTATIC [None]
  - BREAST RECONSTRUCTION [None]
  - INFECTION [None]
  - ORAL CAVITY FISTULA [None]
  - OSTEONECROSIS [None]
  - PAIN [None]
  - RADICAL MASTECTOMY [None]
  - THORACOTOMY [None]
